FAERS Safety Report 6925094-0 (Version None)
Quarter: 2010Q3

REPORT INFORMATION
  Report Type: 
  Country: None (occurrence: None)
  Receive Date: 20100816
  Receipt Date: 20100714
  Transmission Date: 20110219
  Serious: No
  Sender: FDA-Public Use
  Company Number: US-BAYER-201018372BCC

PATIENT
  Age: 60 Year
  Sex: Female
  Weight: 88 kg

DRUGS (2)
  1. ALEVE (CAPLET) [Suspect]
     Indication: BACK PAIN
     Dosage: AS USED: 220 MG  UNIT DOSE: 220 MG
     Route: 048
     Dates: start: 20090101
  2. MULTI-VITAMIN [Concomitant]
     Route: 065

REACTIONS (2)
  - ABDOMINAL DISCOMFORT [None]
  - DIARRHOEA [None]
